FAERS Safety Report 6092483-9 (Version None)
Quarter: 2009Q1

REPORT INFORMATION
  Report Type: 
  Country: None (occurrence: None)
  Receive Date: 20090225
  Receipt Date: 20090223
  Transmission Date: 20090719
  Serious: Yes (Disabling)
  Sender: FDA-Public Use
  Company Number: US-MERCK-0901USA01195

PATIENT
  Age: 87 Year
  Sex: Female

DRUGS (4)
  1. JANUVIA [Suspect]
     Indication: TYPE 2 DIABETES MELLITUS
     Route: 048
     Dates: start: 20081203, end: 20090101
  2. ZOCOR [Concomitant]
     Indication: LIPIDS INCREASED
     Route: 048
     Dates: start: 20080211
  3. VERAMYST [Concomitant]
     Indication: RHINITIS ALLERGIC
     Dates: start: 20070725
  4. SINGULAIR [Concomitant]
     Indication: RHINITIS ALLERGIC
     Route: 048
     Dates: start: 20070725

REACTIONS (2)
  - HEADACHE [None]
  - NAUSEA [None]
